FAERS Safety Report 21157679 (Version 1)
Quarter: 2022Q3

REPORT INFORMATION
  Report Type: Spontaneous
  Country: US (occurrence: None)
  Receive Date: 20220731
  Receipt Date: 20220731
  Transmission Date: 20221027
  Serious: Yes (Hospitalization)
  Sender: FDA-Public Use
  Company Number: None

PATIENT
  Age: 80 Year
  Sex: Male

DRUGS (14)
  1. ABIRATERONE ACETATE [Suspect]
     Active Substance: ABIRATERONE ACETATE
     Indication: Prostate cancer
     Dosage: FREQUENCY : DAILY;?
     Route: 048
  2. PREDNISONE [Suspect]
     Active Substance: PREDNISONE
     Dosage: FREQUENCY : DAILY;?
     Route: 048
  3. AMLODIPINE [Concomitant]
     Active Substance: AMLODIPINE BESYLATE
  4. atenolol 50 mg tab [Concomitant]
  5. lipitor 40 mg tab [Concomitant]
  6. CALCIUM\VITAMIN D [Concomitant]
     Active Substance: CALCIUM\VITAMIN D
  7. EYLEA [Concomitant]
     Active Substance: AFLIBERCEPT
  8. hydrochlorothiazide 25 mg tab [Concomitant]
  9. lisinopril 20 mg tab [Concomitant]
  10. loperamide 2 mg tab [Concomitant]
  11. metformin 500 mg tab [Concomitant]
  12. centrum tab [Concomitant]
  13. prazosin 5 mg tab [Concomitant]
  14. XGEVA [Concomitant]
     Active Substance: DENOSUMAB

REACTIONS (4)
  - COVID-19 [None]
  - Pneumonia [None]
  - Blood potassium decreased [None]
  - Urinary tract infection [None]

NARRATIVE: CASE EVENT DATE: 20220730
